FAERS Safety Report 25880933 (Version 1)
Quarter: 2025Q4

REPORT INFORMATION
  Report Type: Spontaneous
  Country: US (occurrence: US)
  Receive Date: 20251004
  Receipt Date: 20251004
  Transmission Date: 20260118
  Serious: No
  Sender: ZYDUS PHARM
  Company Number: US-CADILA HEALTHCARE LIMITED-US-ZYDUS-074016

PATIENT

DRUGS (4)
  1. POTASSIUM CHLORIDE [Suspect]
     Active Substance: POTASSIUM CHLORIDE
     Indication: Hypokalaemic syndrome
     Dosage: 20 MILLIEQUIVALENT
     Route: 048
     Dates: start: 2020, end: 20220110
  2. PREDNISONE [Concomitant]
     Active Substance: PREDNISONE
     Indication: Product used for unknown indication
     Dosage: UNK
     Route: 065
  3. AMMONIUM CHLORIDE\DIPHENHYDRAMINE HYDROCHLORIDE [Concomitant]
     Active Substance: AMMONIUM CHLORIDE\DIPHENHYDRAMINE HYDROCHLORIDE
     Indication: Product used for unknown indication
     Dosage: UNK
     Route: 065
  4. AMLODIPINE BESYLATE\BENAZEPRIL HYDROCHLORIDE [Concomitant]
     Active Substance: AMLODIPINE BESYLATE\BENAZEPRIL HYDROCHLORIDE
     Indication: Hypertension
     Dosage: UNK
     Route: 065

REACTIONS (1)
  - Rash [Not Recovered/Not Resolved]

NARRATIVE: CASE EVENT DATE: 20211101
